FAERS Safety Report 8544487-1 (Version None)
Quarter: 2012Q3

REPORT INFORMATION
  Report Type: 
  Country: None (occurrence: None)
  Receive Date: 20120727
  Receipt Date: 20120726
  Transmission Date: 20120928
  Serious: Yes (Other)
  Sender: FDA-Public Use
  Company Number: PHEH2009US07548

PATIENT
  Sex: Female

DRUGS (14)
  1. VICODIN ES [Concomitant]
  2. PERIDEX [Concomitant]
  3. ZOLOFT [Concomitant]
  4. ZOLOFT [Concomitant]
  5. LIPITOR [Concomitant]
  6. PERCOCET [Concomitant]
  7. ZOMETA [Suspect]
     Dosage: 4 MG,
     Route: 042
  8. CLINDAMYCIN [Concomitant]
     Dosage: 300 MG, QID
  9. AREDIA [Suspect]
  10. DEXEDRINE [Concomitant]
  11. ZANTAC [Concomitant]
  12. ASPIRIN [Concomitant]
  13. ATENOLOL [Concomitant]
  14. INTERFERON [Concomitant]

REACTIONS (31)
  - OSTEOMYELITIS [None]
  - RENAL FAILURE [None]
  - NAUSEA [None]
  - PAIN IN JAW [None]
  - SINUS BRADYCARDIA [None]
  - FALL [None]
  - DIVERTICULITIS [None]
  - OSTEONECROSIS OF JAW [None]
  - RADIUS FRACTURE [None]
  - HYPERLIPIDAEMIA [None]
  - TINNITUS [None]
  - VERTIGO [None]
  - CEREBROVASCULAR ACCIDENT [None]
  - BLOOD CHOLESTEROL INCREASED [None]
  - ANHEDONIA [None]
  - MULTIPLE MYELOMA [None]
  - METASTASES TO BONE [None]
  - PAIN [None]
  - ANXIETY [None]
  - HYPERTENSION [None]
  - DEAFNESS NEUROSENSORY [None]
  - IMMUNODEFICIENCY [None]
  - EUSTACHIAN TUBE DYSFUNCTION [None]
  - GASTROOESOPHAGEAL REFLUX DISEASE [None]
  - GENERAL PHYSICAL HEALTH DETERIORATION [None]
  - EXPOSED BONE IN JAW [None]
  - INTERVERTEBRAL DISC DEGENERATION [None]
  - RIB FRACTURE [None]
  - DEPRESSION [None]
  - HAEMORRHOIDS [None]
  - CERUMEN IMPACTION [None]
